FAERS Safety Report 22594834 (Version 1)
Quarter: 2023Q2

REPORT INFORMATION
  Report Type: Spontaneous
  Country: US (occurrence: US)
  Receive Date: 20230613
  Receipt Date: 20230613
  Transmission Date: 20230721
  Serious: No
  Sender: FDA-Public Use
  Company Number: US-BIOGEN-2023BI01210155

PATIENT
  Age: 62 Year
  Sex: Female

DRUGS (1)
  1. TECFIDERA [Suspect]
     Active Substance: DIMETHYL FUMARATE
     Indication: Multiple sclerosis
     Route: 050
     Dates: start: 20180101

REACTIONS (4)
  - Asthenia [Not Recovered/Not Resolved]
  - Arthropod bite [Unknown]
  - Asthma [Unknown]
  - Vein disorder [Unknown]

NARRATIVE: CASE EVENT DATE: 20230501
